FAERS Safety Report 14296875 (Version 2)
Quarter: 2018Q1

REPORT INFORMATION
  Report Type: Spontaneous
  Country: JP (occurrence: JP)
  Receive Date: 20171218
  Receipt Date: 20180130
  Transmission Date: 20180509
  Serious: Yes (Other)
  Sender: FDA-Public Use
  Company Number: JP-JNJFOC-20171219460

PATIENT
  Age: 89 Year
  Sex: Male

DRUGS (1)
  1. XARELTO [Suspect]
     Active Substance: RIVAROXABAN
     Indication: CEREBROVASCULAR ACCIDENT PROPHYLAXIS
     Route: 048
     Dates: start: 201302, end: 201503

REACTIONS (2)
  - Renal impairment [Unknown]
  - Colitis ischaemic [Recovered/Resolved]

NARRATIVE: CASE EVENT DATE: 201503
